FAERS Safety Report 8285631 (Version 6)
Quarter: 2012Q4

REPORT INFORMATION
  Report Type: Report from Study
  Country: FR (occurrence: FR)
  Receive Date: 20111213
  Receipt Date: 20121108
  Transmission Date: 20130627
  Serious: Yes (Hospitalization)
  Sender: FDA-Public Use
  Company Number: FR-BRISTOL-MYERS SQUIBB COMPANY-16272379

PATIENT
  Age: 75 Year
  Sex: Male
  Weight: 59 kg

DRUGS (5)
  1. CISPLATIN [Suspect]
     Indication: NON-SMALL CELL LUNG CANCER
     Dosage: Last dose on 2Nov11
     Route: 065
     Dates: start: 20111011, end: 20111120
  2. NECITUMUMAB [Suspect]
     Indication: NON-SMALL CELL LUNG CANCER
     Route: 065
     Dates: start: 20111011, end: 20111120
  3. GEMCITABINE HCL [Suspect]
     Indication: NON-SMALL CELL LUNG CANCER
     Dosage: Last dose on 9Nov11
     Route: 065
     Dates: start: 20111011, end: 20111120
  4. NEO-CODION [Concomitant]
     Dates: start: 20111031
  5. ARANESP [Concomitant]
     Dates: start: 20111031

REACTIONS (1)
  - Hepatorenal syndrome [Recovered/Resolved]
